FAERS Safety Report 7490189-2 (Version None)
Quarter: 2011Q2

REPORT INFORMATION
  Report Type: 
  Country: None (occurrence: None)
  Receive Date: 20110512
  Receipt Date: 20110503
  Transmission Date: 20111010
  Serious: Yes (Hospitalization)
  Sender: FDA-Public Use
  Company Number: 029290

PATIENT
  Age: 34 Year
  Sex: Male

DRUGS (2)
  1. VIMPAT [Suspect]
     Indication: EPILEPSY
     Dosage: (50 MG BID ORAL)
     Route: 048
     Dates: start: 20110212, end: 20110219
  2. URBANYL [Concomitant]

REACTIONS (3)
  - PERSECUTORY DELUSION [None]
  - ABNORMAL BEHAVIOUR [None]
  - SENSORY DISTURBANCE [None]
